FAERS Safety Report 6235010-5 (Version None)
Quarter: 2009Q2

REPORT INFORMATION
  Report Type: 
  Country: None (occurrence: None)
  Receive Date: 20090618
  Receipt Date: 20090605
  Transmission Date: 20091009
  Serious: Yes (Hospitalization, Other)
  Sender: FDA-Public Use
  Company Number: JP-ELI_LILLY_AND_COMPANY-JP200906000998

PATIENT
  Age: 25 Year
  Sex: Female

DRUGS (8)
  1. ZYPREXA [Suspect]
     Indication: SCHIZOPHRENIA
     Route: 048
     Dates: end: 20090529
  2. ZYPREXA [Suspect]
     Dosage: 2.5MG X 90 DF, 5MG X 8 DF
     Route: 048
     Dates: start: 20090530, end: 20090530
  3. ABILIFY [Concomitant]
     Route: 048
  4. ABILIFY [Concomitant]
     Dosage: 6MG X 4 DF
     Route: 048
     Dates: start: 20090530, end: 20090530
  5. LENDORMIN [Concomitant]
     Route: 048
  6. LENDORMIN [Concomitant]
     Dosage: 40 DF
     Route: 048
     Dates: start: 20090530, end: 20090530
  7. LEXOTAN [Concomitant]
     Route: 048
  8. LEXOTAN [Concomitant]
     Route: 048
     Dates: start: 20090530, end: 20090530

REACTIONS (5)
  - AGITATION [None]
  - MULTIPLE DRUG OVERDOSE [None]
  - NEUROLEPTIC MALIGNANT SYNDROME [None]
  - PYREXIA [None]
  - TACHYCARDIA [None]
